FAERS Safety Report 5023793-1 (Version None)
Quarter: 2006Q2

REPORT INFORMATION
  Report Type: 
  Country: None (occurrence: None)
  Receive Date: 20060606
  Receipt Date: 20060524
  Transmission Date: 20061013
  Serious: Yes (Hospitalization, Other)
  Sender: FDA-Public Use
  Company Number: US-SHR-03-016819

PATIENT
  Age: 52 Year
  Sex: Female
  Weight: 91 kg

DRUGS (11)
  1. BETASERON [Suspect]
     Indication: MULTIPLE SCLEROSIS
     Dosage: 8 MIU, EVERY 2D, SUBCUTANEOUS
     Dates: start: 20030123, end: 20031029
  2. BETASERON [Suspect]
     Indication: MULTIPLE SCLEROSIS
     Dosage: 8 MIU, EVERY 2D, SUBCUTANEOUS
     Dates: start: 20030123, end: 20060224
  3. NEURONTIN [Concomitant]
  4. CATAPRES [Concomitant]
  5. TOPROL-XL [Concomitant]
  6. POTASSIUM (POTASSIUM) [Concomitant]
  7. PREMARIN [Concomitant]
  8. ASPIRIN [Concomitant]
  9. XANAX [Concomitant]
  10. ENALAPRIL MALEATE [Concomitant]
  11. ADVAIR (SALMETEROL XINAFOATE, FLUTICASONE PROPIONATE) [Concomitant]

REACTIONS (15)
  - BLOOD PRESSURE INCREASED [None]
  - CARDIAC DISORDER [None]
  - CARDIAC FAILURE CONGESTIVE [None]
  - CHRONIC OBSTRUCTIVE PULMONARY DISEASE [None]
  - CORONARY ARTERY DISEASE [None]
  - DILATATION ATRIAL [None]
  - INSOMNIA [None]
  - MITRAL VALVE INCOMPETENCE [None]
  - MULTIPLE SCLEROSIS [None]
  - MYOCARDIAL INFARCTION [None]
  - NASOPHARYNGITIS [None]
  - PALLOR [None]
  - RENAL DISORDER [None]
  - THERAPY NON-RESPONDER [None]
  - WEIGHT DECREASED [None]
